FAERS Safety Report 10039226 (Version 1)
Quarter: 2014Q1

REPORT INFORMATION
  Report Type: Spontaneous
  Country: GB (occurrence: GB)
  Receive Date: 20140326
  Receipt Date: 20140326
  Transmission Date: 20141002
  Serious: Yes (Disabling)
  Sender: FDA-Public Use
  Company Number: PHHY2014GB034504

PATIENT
  Age: 44 Year
  Sex: Female
  Weight: 99.79 kg

DRUGS (6)
  1. TIMOLOL [Suspect]
     Route: 048
     Dates: start: 20140306, end: 20140311
  2. TRAMADOL [Suspect]
     Dates: start: 20140306
  3. AMITRIPTYLINE HYDROCHLORIDE [Concomitant]
     Dates: start: 20140304
  4. CERAZETTE [Concomitant]
     Dates: start: 20140304
  5. CO-CODAMOL [Concomitant]
     Dates: start: 20140217, end: 20140301
  6. NAPROXEN [Concomitant]
     Dates: start: 20131114

REACTIONS (5)
  - Vertigo [Unknown]
  - Burning sensation [Unknown]
  - Blood pressure systolic increased [Unknown]
  - Vomiting [Recovering/Resolving]
  - Dizziness [Unknown]
